FAERS Safety Report 5759245-0 (Version None)
Quarter: 2008Q2

REPORT INFORMATION
  Report Type: 
  Country: None (occurrence: None)
  Receive Date: 20080604
  Receipt Date: 20080530
  Transmission Date: 20081010
  Serious: Yes (Other)
  Sender: FDA-Public Use
  Company Number: BE-PFIZER INC-2008046033

PATIENT
  Sex: Female

DRUGS (1)
  1. SALAZOPYRINE [Suspect]
     Indication: RHEUMATOID ARTHRITIS
     Route: 048
     Dates: start: 20080511, end: 20080525

REACTIONS (4)
  - OEDEMA MOUTH [None]
  - ORAL PAIN [None]
  - RASH GENERALISED [None]
  - SKIN DISCOLOURATION [None]
